FAERS Safety Report 21556507 (Version 1)
Quarter: 2022Q4

REPORT INFORMATION
  Report Type: Spontaneous
  Country: US (occurrence: US)
  Receive Date: 20221104
  Receipt Date: 20221104
  Transmission Date: 20230113
  Serious: No
  Sender: FDA-Public Use
  Company Number: US-BRISTOL-MYERS SQUIBB COMPANY-2022-132321

PATIENT
  Age: 76 Year
  Sex: Female
  Weight: 94 kg

DRUGS (16)
  1. POMALYST [Suspect]
     Active Substance: POMALIDOMIDE
     Indication: Plasma cell myeloma
     Route: 048
     Dates: start: 20221006
  2. POMALYST [Suspect]
     Active Substance: POMALIDOMIDE
     Route: 048
     Dates: start: 20221028
  3. POMALYST [Suspect]
     Active Substance: POMALIDOMIDE
     Route: 048
     Dates: start: 20220923, end: 20221028
  4. ACETAMINOPHEN [Concomitant]
     Active Substance: ACETAMINOPHEN
     Indication: Product used for unknown indication
     Dosage: ACETAMINOPHEN ORAL TABLET 325 MG   PRN
     Route: 048
     Dates: start: 20221005
  5. ACYCLOVIR [Concomitant]
     Active Substance: ACYCLOVIR
     Indication: Product used for unknown indication
     Dosage: ACYCLOVIR ORAL TABLET 400 MG
     Route: 048
     Dates: start: 20221005
  6. ASPIRIN [Concomitant]
     Active Substance: ASPIRIN
     Indication: Product used for unknown indication
     Dosage: ASPIRIN 81 ADULT LOW STRENGTH
     Route: 048
     Dates: start: 20181219
  7. AZELAIC ACID [Concomitant]
     Active Substance: AZELAIC ACID
     Indication: Product used for unknown indication
     Dosage: AZELAIC ACID EXTERNAL GEL 15 %
     Route: 065
     Dates: start: 20221005
  8. BACITRACIN ZINC [Concomitant]
     Active Substance: BACITRACIN ZINC
     Indication: Product used for unknown indication
     Dosage: BACITRACIN ZINC EXTERNAL OINTMENT 500 UNIT EXTRNAL PRN
     Route: 065
     Dates: start: 20221005
  9. COREG [Concomitant]
     Active Substance: CARVEDILOL
     Indication: Product used for unknown indication
     Dosage: BACITRACIN ZINC EXTERNAL OINTMENT 500 UNIT EXTRNAL PRN
     Route: 048
     Dates: start: 20181219
  10. CVS Hydrocortisone [Concomitant]
     Indication: Product used for unknown indication
     Dosage: CVS HYDROCORTISONE ANTI-LTCH EXTERNAL PRN 1%
     Route: 065
     Dates: start: 20220510
  11. CYMBALTA [Concomitant]
     Active Substance: DULOXETINE HYDROCHLORIDE
     Indication: Product used for unknown indication
     Route: 048
     Dates: start: 20181219
  12. EZETIMIBE [Concomitant]
     Active Substance: EZETIMIBE
     Indication: Product used for unknown indication
     Dosage: EZETIMIBE ORAL TABLET 10 MG , DAILY
     Route: 048
     Dates: start: 20221005
  13. FUROSEMIDE [Concomitant]
     Active Substance: FUROSEMIDE
     Indication: Product used for unknown indication
     Dosage: FUROSEMIDE ORAL TABLET 20 MG  , DAILY
     Route: 048
     Dates: start: 20221005
  14. GABAPENTIN [Concomitant]
     Active Substance: GABAPENTIN
     Indication: Product used for unknown indication
     Route: 048
     Dates: start: 20181219
  15. GLIPIZIDE [Concomitant]
     Active Substance: GLIPIZIDE
     Indication: Product used for unknown indication
     Route: 048
     Dates: start: 20221005
  16. LIDOCAINE [Concomitant]
     Active Substance: LIDOCAINE
     Indication: Pain
     Dosage: GNP LIDOCAINE PAIN RELIEF EXTERNAL
     Route: 065
     Dates: start: 20221005

REACTIONS (3)
  - Flatulence [Not Recovered/Not Resolved]
  - Abdominal distension [Not Recovered/Not Resolved]
  - Constipation [Not Recovered/Not Resolved]

NARRATIVE: CASE EVENT DATE: 20220926
